FAERS Safety Report 23193254 (Version 4)
Quarter: 2024Q4

REPORT INFORMATION
  Report Type: Report from Study
  Country: BR (occurrence: BR)
  Receive Date: 20231116
  Receipt Date: 20241029
  Transmission Date: 20250114
  Serious: Yes (Hospitalization)
  Sender: ELI LILLY AND COMPANY
  Company Number: BR-Merck Healthcare KGaA-2023486299

PATIENT
  Age: 48 Year
  Sex: Female

DRUGS (10)
  1. CETUXIMAB [Suspect]
     Active Substance: CETUXIMAB
     Indication: Colon cancer metastatic
     Dosage: UNK UNK, 2/M
     Route: 042
     Dates: start: 20230601
  2. CETUXIMAB [Suspect]
     Active Substance: CETUXIMAB
     Dosage: UNK UNK, 2/M
     Route: 042
     Dates: start: 20231023
  3. LEUCOVORIN CALCIUM [Suspect]
     Active Substance: LEUCOVORIN CALCIUM
     Indication: Colon cancer metastatic
     Dosage: UNK UNK, UNKNOWN
     Route: 065
     Dates: start: 202306
  4. IRINOTECAN HYDROCHLORIDE [Suspect]
     Active Substance: IRINOTECAN HYDROCHLORIDE
     Indication: Colon cancer metastatic
     Dosage: UNK UNK, UNKNOWN
     Route: 065
     Dates: start: 202306
  5. FLUOROURACIL [Suspect]
     Active Substance: FLUOROURACIL
     Indication: Colon cancer metastatic
     Dosage: UNK UNK, UNKNOWN
     Route: 065
     Dates: start: 202306
  6. XGEVA [Concomitant]
     Active Substance: DENOSUMAB
     Indication: Metastases to bone
     Dosage: UNK
  7. DECADRON [DEXAMETHASONE TEBUTATE] [Concomitant]
     Indication: Premedication
     Dosage: UNK
  8. DIPHENHYDRAMINE [Concomitant]
     Active Substance: DIPHENHYDRAMINE
     Indication: Premedication
     Dosage: UNK
  9. GRANISETRON HYDROCHLORIDE [Concomitant]
     Active Substance: GRANISETRON HYDROCHLORIDE
     Indication: Premedication
     Dosage: UNK
  10. ATROPINE [Concomitant]
     Active Substance: ATROPINE
     Indication: Premedication
     Dosage: UNK

REACTIONS (2)
  - Vena cava thrombosis [Recovering/Resolving]
  - Off label use [Unknown]

NARRATIVE: CASE EVENT DATE: 20230901
